FAERS Safety Report 22526840 (Version 1)
Quarter: 2023Q2

REPORT INFORMATION
  Report Type: Spontaneous
  Country: BG (occurrence: BG)
  Receive Date: 20230606
  Receipt Date: 20230606
  Transmission Date: 20230722
  Serious: Yes (Other)
  Sender: FDA-Public Use
  Company Number: BG-009507513-2305BGR010364

PATIENT
  Age: 71 Year
  Sex: Female

DRUGS (3)
  1. KEYTRUDA [Suspect]
     Active Substance: PEMBROLIZUMAB
     Indication: Non-small cell lung cancer
     Dosage: 200 MILLIGRAM, Q3W
     Dates: start: 201901
  2. PEMETREXED [Suspect]
     Active Substance: PEMETREXED
     Indication: Non-small cell lung cancer
     Dosage: 500 MILLIGRAM/SQ. METER
     Dates: start: 201901
  3. CISPLATIN [Suspect]
     Active Substance: CISPLATIN
     Indication: Non-small cell lung cancer
     Dosage: 75 MILLIGRAM/SQ. METER
     Dates: start: 201901

REACTIONS (2)
  - Renal impairment [Unknown]
  - Therapy partial responder [Recovered/Resolved]

NARRATIVE: CASE EVENT DATE: 20190401
